FAERS Safety Report 7116235-3 (Version None)
Quarter: 2010Q4

REPORT INFORMATION
  Report Type: 
  Country: None (occurrence: None)
  Receive Date: 20101122
  Receipt Date: 20101112
  Transmission Date: 20110411
  Serious: Yes (Death, Disabling, Other)
  Sender: FDA-Public Use
  Company Number: JP-GENZYME-FLUD-1000386

PATIENT
  Age: 57 Year
  Sex: Female
  Weight: 45 kg

DRUGS (13)
  1. FLUDARA [Suspect]
     Indication: PREMEDICATION
     Dosage: UNK
     Route: 065
     Dates: start: 20100429, end: 20100503
  2. THYMOGLOBULIN [Suspect]
     Indication: ACUTE GRAFT VERSUS HOST DISEASE
     Dosage: 50 MG, QD
     Route: 042
     Dates: start: 20100714, end: 20100714
  3. THYMOGLOBULIN [Suspect]
     Indication: STEM CELL TRANSPLANT
  4. MELPHALAN HYDROCHLORIDE [Concomitant]
     Indication: PREMEDICATION
     Dosage: UNK
     Route: 065
     Dates: start: 20100503, end: 20100504
  5. CYCLOSPORINE [Concomitant]
     Indication: PREMEDICATION
     Dosage: UNK
     Route: 065
     Dates: start: 20100505, end: 20100506
  6. METHOTREXATE [Concomitant]
     Indication: PREMEDICATION
     Dosage: UNK
     Route: 065
     Dates: start: 20100507, end: 20100512
  7. METHYLPREDNISOLONE SODIUM SUCCINATE [Concomitant]
     Indication: GRAFT VERSUS HOST DISEASE
     Dosage: UNK
     Route: 065
     Dates: start: 20100530, end: 20100724
  8. FOSCARNET SODIUM [Concomitant]
     Indication: ANTIVIRAL PROPHYLAXIS
     Dosage: UNK
     Route: 065
     Dates: start: 20100705, end: 20100724
  9. CARPERITIDE [Concomitant]
     Indication: CONGESTIVE CARDIOMYOPATHY
     Dosage: UNK
     Route: 065
     Dates: start: 20100528, end: 20100724
  10. DOBUTAMINE HYDROCHLORIDE [Concomitant]
     Indication: CONGESTIVE CARDIOMYOPATHY
     Dosage: UNK
     Route: 065
     Dates: start: 20100528, end: 20100724
  11. FUROSEMIDE [Concomitant]
     Indication: CONGESTIVE CARDIOMYOPATHY
     Dosage: UNK
     Route: 065
     Dates: start: 20100528, end: 20100724
  12. POTASSIUM CANRENOATE [Concomitant]
     Indication: CONGESTIVE CARDIOMYOPATHY
     Dosage: UNK
     Route: 065
     Dates: start: 20100528, end: 20100724
  13. BIAPENEM [Concomitant]
     Indication: INFECTION PROPHYLAXIS
     Dosage: UNK
     Route: 065
     Dates: start: 20100615, end: 20100724

REACTIONS (5)
  - ABDOMINAL PAIN [None]
  - ACUTE GRAFT VERSUS HOST DISEASE IN INTESTINE [None]
  - CARDIAC FAILURE CONGESTIVE [None]
  - DYSPNOEA [None]
  - IDIOPATHIC PNEUMONIA SYNDROME [None]
